FAERS Safety Report 6103653-5 (Version None)
Quarter: 2009Q1

REPORT INFORMATION
  Report Type: 
  Country: None (occurrence: None)
  Receive Date: 20090302
  Receipt Date: 20090220
  Transmission Date: 20090719
  Serious: Yes (Hospitalization)
  Sender: FDA-Public Use
  Company Number: 2009JP000969

PATIENT
  Age: 47 Year
  Sex: Female

DRUGS (14)
  1. PROGRAF [Suspect]
     Indication: SYSTEMIC LUPUS ERYTHEMATOSUS
     Dosage: 1 MG, ORAL; 2 MG, ORAL; 3 MG, ORAL; 3 MG, ORAL; 1.5 MG, ORAL; 2 MG, ORAL
     Route: 048
     Dates: end: 20080715
  2. PROGRAF [Suspect]
     Indication: SYSTEMIC LUPUS ERYTHEMATOSUS
     Dosage: 1 MG, ORAL; 2 MG, ORAL; 3 MG, ORAL; 3 MG, ORAL; 1.5 MG, ORAL; 2 MG, ORAL
     Route: 048
     Dates: start: 20080716, end: 20080803
  3. PROGRAF [Suspect]
     Indication: SYSTEMIC LUPUS ERYTHEMATOSUS
     Dosage: 1 MG, ORAL; 2 MG, ORAL; 3 MG, ORAL; 3 MG, ORAL; 1.5 MG, ORAL; 2 MG, ORAL
     Route: 048
     Dates: start: 20080901, end: 20080905
  4. PROGRAF [Suspect]
     Indication: SYSTEMIC LUPUS ERYTHEMATOSUS
     Dosage: 1 MG, ORAL; 2 MG, ORAL; 3 MG, ORAL; 3 MG, ORAL; 1.5 MG, ORAL; 2 MG, ORAL
     Route: 048
     Dates: start: 20080918, end: 20081015
  5. PROGRAF [Suspect]
     Indication: SYSTEMIC LUPUS ERYTHEMATOSUS
     Dosage: 1 MG, ORAL; 2 MG, ORAL; 3 MG, ORAL; 3 MG, ORAL; 1.5 MG, ORAL; 2 MG, ORAL
     Route: 048
     Dates: start: 20081016, end: 20081103
  6. PROGRAF [Suspect]
     Indication: SYSTEMIC LUPUS ERYTHEMATOSUS
     Dosage: 1 MG, ORAL; 2 MG, ORAL; 3 MG, ORAL; 3 MG, ORAL; 1.5 MG, ORAL; 2 MG, ORAL
     Route: 048
     Dates: start: 20080507
  7. LIPITOR [Concomitant]
  8. LANSOPRAZOLE [Concomitant]
  9. PERSANTIN [Concomitant]
  10. PREDNISOLONE [Concomitant]
  11. ALFAROL (ALFACALCIDOL) [Concomitant]
  12. SULFAMETHOXAZOLE AND TRIMETHOPRIM [Concomitant]
  13. FERROMIA (FERROUS CITRATE) [Concomitant]
  14. LAC B (LACTOBACILLUS BIFIDUS, LYOPHILIZED) [Concomitant]

REACTIONS (10)
  - ABDOMINAL PAIN [None]
  - ANGIOEDEMA [None]
  - CONDITION AGGRAVATED [None]
  - GASTROINTESTINAL OEDEMA [None]
  - HEADACHE [None]
  - LIMB DISCOMFORT [None]
  - LYMPHADENITIS [None]
  - NEPHROTIC SYNDROME [None]
  - PAIN [None]
  - SYSTEMIC LUPUS ERYTHEMATOSUS [None]
